FAERS Safety Report 9722900 (Version 1)
Quarter: 2013Q4

REPORT INFORMATION
  Report Type: Spontaneous
  Country: US (occurrence: None)
  Receive Date: 20131126
  Receipt Date: 20131126
  Transmission Date: 20140711
  Serious: Yes (Other)
  Sender: FDA-Public Use
  Company Number: 2013P1021061

PATIENT
  Age: 81 Year
  Sex: Male

DRUGS (12)
  1. BUPROPION [Suspect]
     Indication: FATIGUE
     Route: 048
  2. BACLOFEN [Concomitant]
  3. CYPROHEPTADINE [Concomitant]
  4. WARFARIN [Concomitant]
  5. DIGOXIN [Concomitant]
  6. DILTIAZEM [Concomitant]
  7. SIMVASTATIN [Concomitant]
  8. OMEPRAZOLE [Concomitant]
  9. PSYLLIUM POWDER [Concomitant]
  10. BISACODYL SUPPOSITORY [Concomitant]
  11. MULTIVITAMINS WITH MINERALS [Concomitant]
  12. ALBULEROL [Concomitant]

REACTIONS (6)
  - Hallucination, visual [None]
  - Hallucination, auditory [None]
  - Sleep disorder [None]
  - Appetite disorder [None]
  - Disturbance in attention [None]
  - Condition aggravated [None]
